FAERS Safety Report 5948534-2 (Version None)
Quarter: 2008Q4

REPORT INFORMATION
  Report Type: 
  Country: None (occurrence: None)
  Receive Date: 20081111
  Receipt Date: 20081104
  Transmission Date: 20090506
  Serious: Yes (Hospitalization)
  Sender: FDA-Public Use
  Company Number: US-AVENTIS-200817594US

PATIENT
  Age: 72 Year
  Sex: Female

DRUGS (1)
  1. LOVENOX [Suspect]
     Indication: ACUTE CORONARY SYNDROME
     Route: 051

REACTIONS (6)
  - HAEMATOCRIT DECREASED [None]
  - HAEMOGLOBIN DECREASED [None]
  - HYPOTENSION [None]
  - MUSCLE HAEMORRHAGE [None]
  - SHOCK HAEMORRHAGIC [None]
  - SPLENIC RUPTURE [None]
